FAERS Safety Report 8042272 (Version 11)
Quarter: 2013Q2

REPORT INFORMATION
  Report Type: Report from Study
  Country: US (occurrence: US)
  Receive Date: 20110718
  Receipt Date: 20130506
  Transmission Date: 20140414
  Serious: Yes (Other)
  Sender: FDA-Public Use
  Company Number: PHHY2011US61582

PATIENT
  Age: 39 Year
  Sex: Female

DRUGS (4)
  1. TASIGNA [Suspect]
     Indication: CHRONIC MYELOID LEUKAEMIA
     Dosage: 300 MG, BID
     Route: 048
     Dates: start: 20110316
  2. TASIGNA [Suspect]
     Dosage: 150 MG, BID
     Route: 048
     Dates: start: 20110509
  3. PRILOSEC [Concomitant]
     Dosage: UNK UKN, UNK
  4. ZANTAC [Concomitant]
     Dosage: UNK UKN, UNK

REACTIONS (21)
  - Lower respiratory tract inflammation [Not Recovered/Not Resolved]
  - Vitamin D decreased [Unknown]
  - Lip disorder [Unknown]
  - Skin irritation [Not Recovered/Not Resolved]
  - Nasal congestion [Unknown]
  - Pharyngitis streptococcal [Unknown]
  - Gastrooesophageal reflux disease [Not Recovered/Not Resolved]
  - Body temperature fluctuation [Unknown]
  - Headache [Unknown]
  - Fatigue [Unknown]
  - Dizziness [Unknown]
  - Nausea [Unknown]
  - Decreased appetite [Unknown]
  - Generalised erythema [Unknown]
  - Pruritus generalised [Unknown]
  - Muscular weakness [Unknown]
  - Myalgia [Unknown]
  - Photosensitivity reaction [Unknown]
  - Eczema [Unknown]
  - Abdominal discomfort [Unknown]
  - Nasopharyngitis [Unknown]
